FAERS Safety Report 17970773 (Version 1)
Quarter: 2020Q3

REPORT INFORMATION
  Report Type: Spontaneous
  Country: FR (occurrence: FR)
  Receive Date: 20200701
  Receipt Date: 20200701
  Transmission Date: 20201103
  Serious: Yes (Hospitalization)
  Sender: FDA-Public Use
  Company Number: NVSC2020FR180549

PATIENT
  Age: 60 Year
  Sex: Female
  Weight: 57 kg

DRUGS (4)
  1. ZARZIO [Suspect]
     Active Substance: FILGRASTIM
     Indication: COLONY STIMULATING FACTOR THERAPY
     Dosage: 1 DF, QD
     Route: 058
     Dates: start: 20200421, end: 20200426
  2. CARBOPLATIN ACCORD [Suspect]
     Active Substance: CARBOPLATIN
     Dosage: 345 MG, CYCLIC
     Route: 041
  3. ALIMTA [Suspect]
     Active Substance: PEMETREXED DISODIUM
     Indication: LUNG ADENOCARCINOMA
     Dosage: 800 MG, CYCLIC
     Route: 041
     Dates: start: 20200410, end: 20200430
  4. CARBOPLATIN ACCORD [Suspect]
     Active Substance: CARBOPLATIN
     Indication: LUNG ADENOCARCINOMA
     Dosage: 580 MG, CYCLIC
     Route: 041
     Dates: start: 20200410, end: 20200410

REACTIONS (5)
  - Acute kidney injury [Recovered/Resolved]
  - Rash maculo-papular [Recovering/Resolving]
  - Diarrhoea [Recovering/Resolving]
  - Pancytopenia [Recovering/Resolving]
  - Pruritus [Recovering/Resolving]

NARRATIVE: CASE EVENT DATE: 20200428
